FAERS Safety Report 15981684 (Version 1)
Quarter: 2019Q1

REPORT INFORMATION
  Report Type: Spontaneous
  Country: US (occurrence: US)
  Receive Date: 20190219
  Receipt Date: 20190219
  Transmission Date: 20190418
  Serious: Yes (Other)
  Sender: FDA-Public Use
  Company Number: None

PATIENT
  Age: 88 Year
  Sex: Female
  Weight: 48.15 kg

DRUGS (7)
  1. AFINITOR [Suspect]
     Active Substance: EVEROLIMUS
     Indication: BREAST CANCER
     Route: 048
     Dates: start: 20190110
  2. XGEVA [Concomitant]
     Active Substance: DENOSUMAB
  3. IBRANCE [Concomitant]
     Active Substance: PALBOCICLIB
  4. SINGULAIR [Concomitant]
     Active Substance: MONTELUKAST SODIUM
  5. AFINITOR [Suspect]
     Active Substance: EVEROLIMUS
     Indication: BONE CANCER
     Route: 048
     Dates: start: 20190110
  6. NEXIUM [Concomitant]
     Active Substance: ESOMEPRAZOLE MAGNESIUM
  7. EXEMESTANE. [Concomitant]
     Active Substance: EXEMESTANE

REACTIONS (2)
  - Nausea [None]
  - Dyspnoea [None]
